FAERS Safety Report 15840077 (Version 8)
Quarter: 2020Q1

REPORT INFORMATION
  Report Type: Spontaneous
  Country: US (occurrence: US)
  Receive Date: 20190117
  Receipt Date: 20200306
  Transmission Date: 20200409
  Serious: Yes (Hospitalization)
  Sender: FDA-Public Use
  Company Number: US-BIOMARINAP-US-2019-121554

PATIENT
  Age: 1 Year
  Sex: Female

DRUGS (1)
  1. ALDURAZYME [Suspect]
     Active Substance: LARONIDASE
     Indication: MUCOPOLYSACCHARIDOSIS I
     Dosage: 8.7 MILLIGRAM, QW
     Route: 041
     Dates: start: 20181210

REACTIONS (5)
  - Hypersomnia [Unknown]
  - Rhinorrhoea [Unknown]
  - Red blood cell count decreased [Not Recovered/Not Resolved]
  - Catheter site infection [Recovering/Resolving]
  - Immune system disorder [Not Recovered/Not Resolved]
